FAERS Safety Report 23297838 (Version 2)
Quarter: 2023Q4

REPORT INFORMATION
  Report Type: Report from Study
  Country: RU (occurrence: None)
  Receive Date: 20231214
  Receipt Date: 20231220
  Transmission Date: 20240110
  Serious: Yes (Hospitalization, Other)
  Sender: FDA-Public Use
  Company Number: 2022A332036

PATIENT
  Age: 199 Month
  Sex: Female

DRUGS (2)
  1. KOSELUGO [Suspect]
     Active Substance: SELUMETINIB
     Indication: Neurofibromatosis
     Dosage: 4 CAPSULES OF 10 MG AT A TIME AT 10 AM, AT 10 PM.
     Route: 048
  2. KOSELUGO [Suspect]
     Active Substance: SELUMETINIB
     Indication: Neurofibromatosis
     Route: 048
     Dates: start: 20211201

REACTIONS (29)
  - Adnexal torsion [Recovered/Resolved]
  - Ovarian cyst [Unknown]
  - Ovarian adenoma [Unknown]
  - Pelvic neoplasm [Unknown]
  - Thrombosis [Unknown]
  - Urachal abnormality [Unknown]
  - Skin disorder [Unknown]
  - Endocrine disorder [Unknown]
  - Alopecia [Unknown]
  - Anaemia [Unknown]
  - Haematoma [Unknown]
  - Gallbladder volvulus [Unknown]
  - Petechiae [Unknown]
  - Asthenia [Unknown]
  - Oedema peripheral [Unknown]
  - Paronychia [Recovered/Resolved]
  - Headache [Unknown]
  - Dizziness postural [Unknown]
  - Fatigue [Unknown]
  - Conversion disorder [Unknown]
  - Illness [Unknown]
  - Vulvitis [Unknown]
  - Temporomandibular joint syndrome [Unknown]
  - Hordeolum [Unknown]
  - Rash [Recovering/Resolving]
  - Genital candidiasis [Unknown]
  - Nail disorder [Unknown]
  - Hyperaemia [Unknown]
  - Nausea [Unknown]

NARRATIVE: CASE EVENT DATE: 20220701
